FAERS Safety Report 21768241 (Version 1)
Quarter: 2022Q4

REPORT INFORMATION
  Report Type: Spontaneous
  Country: US (occurrence: None)
  Receive Date: 20221222
  Receipt Date: 20221222
  Transmission Date: 20230113
  Serious: No
  Sender: FDA-Public Use
  Company Number: None

PATIENT
  Age: 79 Year
  Sex: 0
  Weight: 58.95 kg

DRUGS (1)
  1. CHLORHEXIDINE GLUCONATE [Suspect]
     Active Substance: CHLORHEXIDINE GLUCONATE
     Indication: Tooth infection
     Dosage: OTHER QUANTITY : 1 OUNCE(S);?FREQUENCY : TWICE A DAY;?OTHER ROUTE : MOUTH RINSE, THEN SPIT OUT;?
     Route: 050
     Dates: start: 20221207, end: 20221214

REACTIONS (2)
  - Dysgeusia [None]
  - Dysgeusia [None]

NARRATIVE: CASE EVENT DATE: 20221214
